FAERS Safety Report 9848520 (Version 2)
Quarter: 2020Q3

REPORT INFORMATION
  Report Type: Spontaneous
  Country: US (occurrence: US)
  Receive Date: 20140128
  Receipt Date: 20150218
  Transmission Date: 20201104
  Serious: Yes (Hospitalization, Other)
  Sender: FDA-Public Use
  Company Number: US-ROCHE-1334499

PATIENT
  Sex: Female

DRUGS (8)
  1. RIBAVIRIN. [Suspect]
     Active Substance: RIBAVIRIN
     Dosage: 2 TABLETS IN MORNING AND 3 TABLETS IN NIGHT.
     Route: 065
     Dates: start: 201208, end: 201211
  2. RITONAVIR. [Suspect]
     Active Substance: RITONAVIR
     Indication: HEPATITIS C
     Dosage: 1 TABLET IN MORNING AND 1 TABLET IN NIGHT
     Route: 065
  3. PEGASYS [Suspect]
     Active Substance: PEGINTERFERON ALFA-2A
     Indication: HEPATITIS C
     Dosage: DOSE: 1075 MG
     Route: 065
  4. RITONAVIR. [Suspect]
     Active Substance: RITONAVIR
     Dosage: 1 TABLET IN MORNING AND 1 TABLET IN NIGHT
     Route: 065
     Dates: start: 201208, end: 201211
  5. RIBAVIRIN. [Suspect]
     Active Substance: RIBAVIRIN
     Indication: HEPATITIS C
     Dosage: 2 TABLETS IN MORNING AND 3 TABLETS IN NIGHT.
     Route: 065
  6. DANOPREVIR. [Suspect]
     Active Substance: DANOPREVIR
     Indication: HEPATITIS C
     Dosage: 1 TABLET IN MORNING AND 1 TABLET IN NIGHT
     Route: 065
  7. PEGASYS [Suspect]
     Active Substance: PEGINTERFERON ALFA-2A
     Route: 065
     Dates: start: 20120821
  8. DANOPREVIR. [Suspect]
     Active Substance: DANOPREVIR
     Dosage: 1 TABLET IN MORNING AND 1 TABLET IN NIGHT
     Route: 065
     Dates: start: 201208, end: 201211

REACTIONS (15)
  - Hyponatraemia [Unknown]
  - Abdominal pain upper [Unknown]
  - Internal haemorrhage [Unknown]
  - Hypoaesthesia [Unknown]
  - Weight decreased [Unknown]
  - Arthritis [Unknown]
  - Neuropathy peripheral [Unknown]
  - Insomnia [Unknown]
  - Thrombocytopenia [Unknown]
  - Emotional distress [Unknown]
  - Rheumatoid arthritis [Unknown]
  - Anaemia [Unknown]
  - Asthma [Unknown]
  - Alopecia [Unknown]
  - Muscular weakness [Unknown]
